FAERS Safety Report 6235702-8 (Version None)
Quarter: 2009Q2

REPORT INFORMATION
  Report Type: 
  Country: None (occurrence: None)
  Receive Date: 20090616
  Receipt Date: 20090608
  Transmission Date: 20091009
  Serious: Yes (Hospitalization)
  Sender: FDA-Public Use
  Company Number: 2009005967

PATIENT
  Age: 57 Year
  Sex: Male
  Weight: 69.4003 kg

DRUGS (1)
  1. TREANDA [Suspect]
     Indication: LYMPHOMA
     Dosage: (120 MG,DAYS 1 AND 2 Q4 WKS), INTRAVENOUS
     Route: 042
     Dates: start: 20090417

REACTIONS (2)
  - ACUTE FEBRILE NEUTROPHILIC DERMATOSIS [None]
  - NEUROPATHY PERIPHERAL [None]
